FAERS Safety Report 4564213-0 (Version None)
Quarter: 2005Q1

REPORT INFORMATION
  Report Type: 
  Country: None (occurrence: None)
  Receive Date: 20050126
  Receipt Date: 20050110
  Transmission Date: 20050727
  Serious: Yes (Other)
  Sender: FDA-Public Use
  Company Number: 310001M05TUR

PATIENT
  Age: 34 Year
  Sex: Female

DRUGS (1)
  1. GONAL-F [Suspect]
     Indication: OVULATION INDUCTION
     Dosage: SUBCUTANEOUS
     Route: 058

REACTIONS (1)
  - URTICARIA [None]
